FAERS Safety Report 22124353 (Version 1)
Quarter: 2023Q1

REPORT INFORMATION
  Report Type: Spontaneous
  Country: US (occurrence: US)
  Receive Date: 20230322
  Receipt Date: 20230322
  Transmission Date: 20230417
  Serious: Yes (Other)
  Sender: FDA-Public Use
  Company Number: US-BTGSP-US-BTGSP-23-0061

PATIENT

DRUGS (3)
  1. DIGIFAB [Suspect]
     Active Substance: OVINE DIGOXIN IMMUNE FAB
     Indication: Herbal toxicity
     Dosage: UNK
     Route: 065
  2. AMIODARONE [Suspect]
     Active Substance: AMIODARONE
     Indication: Ventricular tachycardia
     Dosage: UNK
     Route: 065
  3. LIDOCAINE [Suspect]
     Active Substance: LIDOCAINE
     Indication: Ventricular tachycardia
     Dosage: UNK
     Route: 065

REACTIONS (3)
  - Left ventricular dilatation [Recovered/Resolved]
  - Left ventricular dysfunction [Recovered/Resolved]
  - Off label use [Unknown]
